FAERS Safety Report 18723671 (Version 1)
Quarter: 2021Q1

REPORT INFORMATION
  Report Type: Spontaneous
  Country: US (occurrence: US)
  Receive Date: 20210108
  Receipt Date: 20210108
  Transmission Date: 20210419
  Serious: Yes (Other)
  Sender: FDA-Public Use
  Company Number: None

PATIENT
  Age: 58 Year
  Sex: Female
  Weight: 157.5 kg

DRUGS (1)
  1. NOVOLIN NOS [Suspect]
     Active Substance: INSULIN HUMAN
     Indication: DRUG THERAPY
     Route: 008
     Dates: start: 20150131, end: 20210108

REACTIONS (3)
  - Delirium [None]
  - Bone disorder [None]
  - Bedridden [None]

NARRATIVE: CASE EVENT DATE: 20210108
